FAERS Safety Report 25778073 (Version 1)
Quarter: 2025Q3

REPORT INFORMATION
  Report Type: Spontaneous
  Country: CN (occurrence: CN)
  Receive Date: 20250909
  Receipt Date: 20250909
  Transmission Date: 20251020
  Serious: Yes (Life-Threatening, Hospitalization, Other)
  Sender: RANBAXY
  Company Number: CN-SUN PHARMACEUTICAL INDUSTRIES LTD-2025R1-526355

PATIENT
  Age: 26 Year
  Sex: Male

DRUGS (2)
  1. QUETIAPINE [Suspect]
     Active Substance: QUETIAPINE
     Indication: Depression
     Route: 048
  2. QUETIAPINE [Suspect]
     Active Substance: QUETIAPINE
     Indication: Claustrophobia

REACTIONS (10)
  - Acute kidney injury [Recovered/Resolved]
  - Long QT syndrome [Unknown]
  - Overdose [Unknown]
  - Neuropathy peripheral [Recovered/Resolved]
  - Pigment nephropathy [Recovered/Resolved]
  - Rhabdomyolysis [Recovered/Resolved]
  - Tachycardia [Recovered/Resolved]
  - Toxicity to various agents [Unknown]
  - Tubulointerstitial nephritis [Recovered/Resolved]
  - Unresponsive to stimuli [Recovered/Resolved]
